FAERS Safety Report 9092645 (Version 1)
Quarter: 2013Q1

REPORT INFORMATION
  Report Type: Spontaneous
  Country: US (occurrence: None)
  Receive Date: 20130213
  Receipt Date: 20130213
  Transmission Date: 20140127
  Serious: No
  Sender: FDA-Public Use
  Company Number: None

PATIENT
  Age: 36 Year
  Sex: Male
  Weight: 172.37 kg

DRUGS (1)
  1. REGADENOSON [Suspect]
     Indication: CARDIAC STRESS TEST
     Dates: start: 20130207, end: 20130207

REACTIONS (2)
  - Headache [None]
  - Neck pain [None]
